FAERS Safety Report 13453591 (Version 1)
Quarter: 2017Q2

REPORT INFORMATION
  Report Type: Spontaneous
  Country: US (occurrence: US)
  Receive Date: 20170418
  Receipt Date: 20170418
  Transmission Date: 20170830
  Serious: No
  Sender: FDA-Public Use
  Company Number: US-ALLERGAN-1662021US

PATIENT
  Age: 59 Year
  Sex: Female
  Weight: 86.17 kg

DRUGS (2)
  1. LUMIGAN [Suspect]
     Active Substance: BIMATOPROST
     Indication: INTRAOCULAR PRESSURE DECREASED
     Dosage: 2 GTT, QHS
     Route: 047
     Dates: start: 20160515, end: 20160521
  2. DORZOLAMIDE [Concomitant]
     Active Substance: DORZOLAMIDE
     Indication: INTRAOCULAR PRESSURE DECREASED
     Dosage: UNK
     Dates: start: 201607

REACTIONS (4)
  - Drug ineffective [Unknown]
  - Eye pruritus [Recovered/Resolved]
  - Burning sensation [Recovered/Resolved]
  - Eye pain [Recovered/Resolved]

NARRATIVE: CASE EVENT DATE: 20160624
